FAERS Safety Report 6318622-X (Version None)
Quarter: 2009Q3

REPORT INFORMATION
  Report Type: 
  Country: None (occurrence: None)
  Receive Date: 20090821
  Receipt Date: 20090813
  Transmission Date: 20100115
  Serious: No
  Sender: FDA-Public Use
  Company Number: US-B.I. PHARMACEUTICALS,INC./RIDGEFIELD-2009-BP-09864BP

PATIENT
  Age: 2 Year
  Sex: Male

DRUGS (1)
  1. ZANTAC 150 [Suspect]
     Dosage: PLACED 2 TABLETS IN HIS MOUTH
     Route: 048

REACTIONS (1)
  - ACCIDENTAL DRUG INTAKE BY CHILD [None]
